FAERS Safety Report 6907607-8 (Version None)
Quarter: 2010Q3

REPORT INFORMATION
  Report Type: 
  Country: None (occurrence: None)
  Receive Date: 20100805
  Receipt Date: 20100727
  Transmission Date: 20110219
  Serious: No
  Sender: FDA-Public Use
  Company Number: 2009BI029304

PATIENT
  Age: 37 Year
  Sex: Female

DRUGS (4)
  1. TYSABRI [Suspect]
     Indication: MULTIPLE SCLEROSIS
     Route: 042
     Dates: start: 20090528, end: 20091001
  2. TYSABRI [Suspect]
     Route: 042
     Dates: start: 20080926, end: 20080926
  3. ARICEPT [Concomitant]
     Dates: start: 20080926, end: 20080926
  4. ARICEPT [Concomitant]
     Dates: start: 20090528, end: 20090701

REACTIONS (11)
  - APHASIA [None]
  - ASTHENIA [None]
  - DRUG INEFFECTIVE [None]
  - FAECAL INCONTINENCE [None]
  - GAIT DISTURBANCE [None]
  - MEMORY IMPAIRMENT [None]
  - MUSCULAR WEAKNESS [None]
  - NECK PAIN [None]
  - PAIN [None]
  - TREMOR [None]
  - WEIGHT INCREASED [None]
